FAERS Safety Report 4444728-6 (Version None)
Quarter: 2004Q3

REPORT INFORMATION
  Report Type: 
  Country: None (occurrence: None)
  Receive Date: 20040903
  Receipt Date: 20040824
  Transmission Date: 20050211
  Serious: Yes (Other)
  Sender: FDA-Public Use
  Company Number: 2004059193

PATIENT
  Age: 49 Year
  Sex: Male

DRUGS (1)
  1. ATORVASTATIN CALCIUM [Suspect]
     Indication: ILL-DEFINED DISORDER
     Dosage: 20 MG (10 MG, 1 IN1 D); UNKNOWN (SEE IMAGE)
     Route: 065
     Dates: start: 20001023, end: 20031003

REACTIONS (5)
  - BLOOD CREATINE PHOSPHOKINASE INCREASED [None]
  - CEREBROVASCULAR ACCIDENT [None]
  - MUSCLE CRAMP [None]
  - MYALGIA [None]
  - PHLEBITIS [None]
